FAERS Safety Report 9697308 (Version 2)
Quarter: 2014Q1

REPORT INFORMATION
  Report Type: Spontaneous
  Country: GB (occurrence: GB)
  Receive Date: 20131120
  Receipt Date: 20140217
  Transmission Date: 20141002
  Serious: Yes (Other)
  Sender: FDA-Public Use
  Company Number: GB-RANBAXY-2013R1-75150

PATIENT
  Age: 49 Year
  Sex: Female

DRUGS (9)
  1. IBUPROFEN [Suspect]
     Indication: PAIN IN EXTREMITY
     Dosage: UNK
     Route: 048
     Dates: end: 20131029
  2. CITALOPRAM [Interacting]
     Indication: DEPRESSION
     Dosage: UNK
     Route: 065
  3. DIAZEPAM [Concomitant]
     Indication: ANXIETY
     Route: 065
  4. TEMAZEPAM [Concomitant]
     Indication: ANXIETY
     Route: 065
  5. PARACETAMOL [Concomitant]
     Indication: PRODUCT USED FOR UNKNOWN INDICATION
     Route: 065
  6. QVAR [Concomitant]
     Indication: ASTHMA
     Dosage: UNK
     Route: 065
  7. SALAMOL [Concomitant]
     Indication: ASTHMA
     Dosage: UNK
     Route: 065
  8. SEREVENT [Concomitant]
     Indication: ASTHMA
     Dosage: UNK
     Route: 065
  9. FEMSEVEN [Concomitant]
     Indication: HORMONE REPLACEMENT THERAPY
     Dosage: UNK
     Route: 065

REACTIONS (2)
  - Rectal haemorrhage [Recovered/Resolved]
  - Drug interaction [Unknown]
